FAERS Safety Report 15429269 (Version 3)
Quarter: 2018Q4

REPORT INFORMATION
  Report Type: Spontaneous
  Country: US (occurrence: US)
  Receive Date: 20180926
  Receipt Date: 20181127
  Transmission Date: 20190204
  Serious: No
  Sender: FDA-Public Use
  Company Number: US-PFIZER INC-2018388483

PATIENT
  Age: 46 Year
  Sex: Female
  Weight: 82.54 kg

DRUGS (24)
  1. DOCETAXEL. [Suspect]
     Active Substance: DOCETAXEL
     Indication: BREAST CANCER FEMALE
     Dosage: 150 MG, EVERY 3 WEEKS (6 CYCLES)
     Dates: start: 20120327, end: 20120711
  2. PLAQUENIL [Concomitant]
     Active Substance: HYDROXYCHLOROQUINE SULFATE
     Dosage: UNK
     Dates: start: 200501, end: 201012
  3. TYLENOL [Concomitant]
     Active Substance: ACETAMINOPHEN
     Dosage: UNK
     Dates: start: 200501, end: 201203
  4. SULFASALAZINE. [Concomitant]
     Active Substance: SULFASALAZINE
     Dosage: UNK
     Dates: start: 200501, end: 201012
  5. CLARITIN [LORATADINE] [Concomitant]
     Dosage: UNK
  6. DEXAMETHASONE. [Concomitant]
     Active Substance: DEXAMETHASONE
     Dosage: UNK
  7. COMPAZINE [PROCHLORPERAZINE EDISYLATE] [Concomitant]
     Dosage: UNK
  8. HERCEPTIN [Concomitant]
     Active Substance: TRASTUZUMAB
     Dosage: UNK
  9. FLONASE [Concomitant]
     Active Substance: FLUTICASONE PROPIONATE
     Dosage: UNK
  10. XANAX [Concomitant]
     Active Substance: ALPRAZOLAM
     Dosage: UNK
  11. TYLENOL PM [Concomitant]
     Active Substance: ACETAMINOPHEN\DIPHENHYDRAMINE
     Dosage: UNK
  12. EMLA [LIDOCAINE HYDROCHLORIDE;PRILOCAINE HYDROCHLORIDE] [Concomitant]
     Dosage: UNK
  13. ZOFRAN [ONDANSETRON HYDROCHLORIDE] [Concomitant]
     Dosage: UNK
  14. IBUPROFEN. [Concomitant]
     Active Substance: IBUPROFEN
     Dosage: UNK
     Dates: start: 200501, end: 201203
  15. FLEXERIL [CYCLOBENZAPRINE HYDROCHLORIDE] [Concomitant]
     Dosage: UNK
  16. VITAMIN D [ERGOCALCIFEROL] [Concomitant]
     Dosage: UNK
  17. TAMOXIFEN [Concomitant]
     Active Substance: TAMOXIFEN
     Dosage: UNK
     Dates: start: 201207, end: 201405
  18. TAXOTERE [Suspect]
     Active Substance: DOCETAXEL
     Indication: BREAST CANCER FEMALE
     Dosage: 150 MG, EVERY 3 WEEKS (6 CYCLES)
     Dates: start: 20120327, end: 20120711
  19. FOLIC ACID. [Concomitant]
     Active Substance: FOLIC ACID
     Dosage: UNK
     Dates: start: 200501, end: 201012
  20. OXYCODONE [Concomitant]
     Active Substance: OXYCODONE
     Dosage: UNK
  21. PARAPLATIN [Concomitant]
     Active Substance: CARBOPLATIN
     Dosage: UNK
  22. CARBOPLATIN. [Concomitant]
     Active Substance: CARBOPLATIN
     Dosage: UNK
  23. COLACE [Concomitant]
     Active Substance: DOCUSATE SODIUM
     Dosage: UNK
  24. METHOTREXATE. [Concomitant]
     Active Substance: METHOTREXATE
     Dosage: UNK

REACTIONS (5)
  - Hair texture abnormal [Not Recovered/Not Resolved]
  - Depression [Unknown]
  - Hair disorder [Not Recovered/Not Resolved]
  - Alopecia [Not Recovered/Not Resolved]
  - Hair colour changes [Not Recovered/Not Resolved]

NARRATIVE: CASE EVENT DATE: 20130111
